FAERS Safety Report 19776901 (Version 2)
Quarter: 2021Q4

REPORT INFORMATION
  Report Type: Spontaneous
  Country: BE (occurrence: BE)
  Receive Date: 20210902
  Receipt Date: 20211110
  Transmission Date: 20220303
  Serious: No
  Sender: FDA-Public Use
  Company Number: BE-SA-SAC20210826000288

PATIENT
  Age: 77 Year

DRUGS (3)
  1. ALEMTUZUMAB [Suspect]
     Active Substance: ALEMTUZUMAB
  2. CAMPATH [Suspect]
     Active Substance: ALEMTUZUMAB
     Indication: Thrombocytopenia
  3. MABCAMPATH [Suspect]
     Active Substance: ALEMTUZUMAB

REACTIONS (1)
  - Off label use [Unknown]
